FAERS Safety Report 5691458-9 (Version None)
Quarter: 2008Q2

REPORT INFORMATION
  Report Type: 
  Country: None (occurrence: None)
  Receive Date: 20080401
  Receipt Date: 20080401
  Transmission Date: 20081010
  Serious: Yes (Other)
  Sender: FDA-Public Use
  Company Number: None

PATIENT
  Age: 77 Year
  Sex: Male
  Weight: 81.1939 kg

DRUGS (1)
  1. ALTACE [Suspect]
     Indication: ARTERITIS
     Dosage: 1.25 DAILY PO
     Route: 048
     Dates: start: 20080101, end: 20080330

REACTIONS (2)
  - FEELING HOT [None]
  - FLUSHING [None]
